FAERS Safety Report 8206846-6 (Version None)
Quarter: 2012Q1

REPORT INFORMATION
  Report Type: 
  Country: None (occurrence: None)
  Receive Date: 20120312
  Receipt Date: 20120226
  Transmission Date: 20120608
  Serious: Yes (Other)
  Sender: FDA-Public Use
  Company Number: 2012-1072

PATIENT
  Age: 61 Year
  Sex: Female
  Weight: 58 kg

DRUGS (5)
  1. WELLBUTRIN [Concomitant]
  2. CALCIUM CARBONATE [Concomitant]
  3. AN UNSPECIFIED STATIN (HMG COA REDUCTASE INHIBITORS) [Concomitant]
  4. DYSPORT [Suspect]
     Indication: SKIN WRINKLING
     Dosage: (SINGLE CYCLE)
     Dates: start: 20120224, end: 20120224
  5. NUMBING CREAM NOS (ANAESTHETICS FOR TOPICAL USE) [Concomitant]

REACTIONS (5)
  - PALPITATIONS [None]
  - FEELING ABNORMAL [None]
  - GASTRIC DISORDER [None]
  - MUSCULAR WEAKNESS [None]
  - ATONIC URINARY BLADDER [None]
